FAERS Safety Report 8506718-3 (Version None)
Quarter: 2012Q3

REPORT INFORMATION
  Report Type: 
  Country: None (occurrence: None)
  Receive Date: 20120712
  Receipt Date: 20120706
  Transmission Date: 20120928
  Serious: Yes (Hospitalization)
  Sender: FDA-Public Use
  Company Number: IT-B.I. PHARMACEUTICALS,INC./RIDGEFIELD-2012-IT-00200IT

PATIENT
  Sex: Female

DRUGS (3)
  1. LASIX [Concomitant]
     Indication: HYPERTENSION
     Route: 048
  2. MICARDIS HCT [Suspect]
     Indication: HYPERTENSION
     Dosage: STRENGTH: 80/12.5;  DAILY DOSE: ONE POSOLOGIC UNIT
     Route: 048
     Dates: start: 20120101, end: 20120616
  3. NEBIVOLOL HCL [Concomitant]
     Indication: HYPERTENSION

REACTIONS (1)
  - HYPONATRAEMIA [None]
